FAERS Safety Report 6379314-4 (Version None)
Quarter: 2009Q3

REPORT INFORMATION
  Report Type: 
  Country: None (occurrence: None)
  Receive Date: 20090923
  Receipt Date: 20090923
  Transmission Date: 20100115
  Serious: Yes (Hospitalization)
  Sender: FDA-Public Use
  Company Number: None

PATIENT
  Age: 64 Year
  Sex: Female

DRUGS (10)
  1. WARFARIN [Suspect]
     Indication: THROMBOSIS PROPHYLAXIS
     Dosage: UNKNOWN DOSE - HOME
  2. ATIVAN [Concomitant]
  3. LIPITOR [Concomitant]
  4. LEXAPRO [Concomitant]
  5. FERROUS SULFATE TAB [Concomitant]
  6. COREG [Concomitant]
  7. CALCIUM ACETATE [Concomitant]
  8. CALCITRIOL [Concomitant]
  9. ASPIRIN [Concomitant]
  10. ALBUTEROL [Concomitant]

REACTIONS (1)
  - INTERNATIONAL NORMALISED RATIO INCREASED [None]
